FAERS Safety Report 11582992 (Version 1)
Quarter: 2015Q4

REPORT INFORMATION
  Report Type: Spontaneous
  Country: US (occurrence: US)
  Receive Date: 20151001
  Receipt Date: 20151001
  Transmission Date: 20160304
  Serious: No
  Sender: FDA-Public Use
  Company Number: US-ROCHE-700997

PATIENT
  Age: 55 Year
  Sex: Female

DRUGS (6)
  1. ASPIRIN. [Concomitant]
     Active Substance: ASPIRIN
     Dosage: DRUG GIVEN AS ASPIRIN 81 MG
     Route: 065
  2. PEGASYS [Suspect]
     Active Substance: PEGINTERFERON ALFA-2A
     Indication: HEPATITIS C
     Route: 065
  3. RIBAVIRIN. [Suspect]
     Active Substance: RIBAVIRIN
     Indication: HEPATITIS C
     Dosage: DIVIDED DOSE.
     Route: 065
  4. LISINOPRIL. [Concomitant]
     Active Substance: LISINOPRIL
     Route: 065
  5. GLIBENCLAMIDE [Concomitant]
     Active Substance: GLYBURIDE
     Route: 065
  6. METFORMIN [Concomitant]
     Active Substance: METFORMIN HYDROCHLORIDE
     Route: 065

REACTIONS (6)
  - Asthenia [Not Recovered/Not Resolved]
  - Nausea [Not Recovered/Not Resolved]
  - Chills [Not Recovered/Not Resolved]
  - Increased appetite [Unknown]
  - Pyrexia [Not Recovered/Not Resolved]
  - Fatigue [Not Recovered/Not Resolved]

NARRATIVE: CASE EVENT DATE: 20100416
